FAERS Safety Report 4937589-X (Version None)
Quarter: 2006Q1

REPORT INFORMATION
  Report Type: 
  Country: None (occurrence: None)
  Receive Date: 20060309
  Receipt Date: 20041217
  Transmission Date: 20060701
  Serious: Yes (Death, Life-Threatening, Hospitalization)
  Sender: FDA-Public Use
  Company Number: FR-MERCK-0412FRA00059

PATIENT
  Age: 74 Year
  Sex: Male

DRUGS (5)
  1. VIOXX [Suspect]
     Route: 048
     Dates: start: 20021101, end: 20041001
  2. PINDOLOL [Suspect]
     Indication: HYPERTENSION
     Route: 048
  3. TAMSULOSIN HYDROCHLORIDE [Suspect]
     Indication: BENIGN PROSTATIC HYPERPLASIA
     Route: 048
  4. GLIMEPIRIDE [Suspect]
     Indication: DIABETES MELLITUS NON-INSULIN-DEPENDENT
     Route: 048
  5. METFORMIN [Suspect]
     Indication: DIABETES MELLITUS NON-INSULIN-DEPENDENT
     Route: 048

REACTIONS (7)
  - ANOXIA [None]
  - ARRHYTHMIA [None]
  - CARDIAC ARREST [None]
  - LUNG INFECTION [None]
  - NOSOCOMIAL INFECTION [None]
  - PSEUDOMONAS INFECTION [None]
  - SEPSIS [None]
